FAERS Safety Report 4648184-4 (Version None)
Quarter: 2005Q2

REPORT INFORMATION
  Report Type: 
  Country: None (occurrence: None)
  Receive Date: 20050331
  Receipt Date: 20050112
  Transmission Date: 20051028
  Serious: No
  Sender: FDA-Public Use
  Company Number: 05P-163-0286195-00

PATIENT
  Age: 73 Year
  Sex: Female
  Weight: 81.6475 kg

DRUGS (14)
  1. HUMIRA [Suspect]
     Indication: RHEUMATOID ARTHRITIS
     Dosage: 40 MG, 1 IN 2 WK, SUBCUTANEOUS
     Route: 058
     Dates: start: 20031001
  2. AMITRIPTYLINE HCL TAB [Concomitant]
  3. HYDROCODONE BITARTRATE [Concomitant]
  4. LEVOTHYROXINE SODIUM [Concomitant]
  5. PRIMIDONE [Concomitant]
  6. FUROSEMIDE [Concomitant]
  7. METHOTREXATE SODIUM [Concomitant]
  8. PREDNISONE TAB [Concomitant]
  9. FOLIC ACID [Concomitant]
  10. VERAPAMIL [Concomitant]
  11. POTASSIUM CHLORIDE [Concomitant]
  12. FAMOTIDINE [Concomitant]
  13. BUDESONIDE [Concomitant]
  14. ADVAIR DISKUS 100/50 [Concomitant]

REACTIONS (2)
  - COUGH [None]
  - UPPER RESPIRATORY TRACT INFECTION [None]
